FAERS Safety Report 6505646-2 (Version None)
Quarter: 2009Q4

REPORT INFORMATION
  Report Type: 
  Country: None (occurrence: None)
  Receive Date: 20091218
  Receipt Date: 20091214
  Transmission Date: 20100525
  Serious: Yes (Life-Threatening, Hospitalization)
  Sender: FDA-Public Use
  Company Number: GB-TEVA-164164ISR

PATIENT
  Age: 61 Year
  Sex: Male
  Weight: 85 kg

DRUGS (1)
  1. SIMVASTATIN [Suspect]
     Indication: HYPERCHOLESTEROLAEMIA
     Route: 048
     Dates: start: 20050711

REACTIONS (4)
  - ARTERIAL STENT INSERTION [None]
  - CONJUNCTIVITIS ALLERGIC [None]
  - DEPRESSION [None]
  - MYOCARDIAL INFARCTION [None]
